FAERS Safety Report 4878356-5 (Version None)
Quarter: 2005Q4

REPORT INFORMATION
  Report Type: 
  Country: None (occurrence: None)
  Receive Date: 20051206
  Receipt Date: 20050907
  Transmission Date: 20060501
  Serious: No
  Sender: FDA-Public Use
  Company Number: USA0509107409

PATIENT
  Sex: Male

DRUGS (2)
  1. CYMBALTA [Suspect]
     Indication: PAIN
     Dosage: 30 MG DAY
     Dates: start: 20050906
  2. BLOOD PRESSURE MEDICATION [Concomitant]

REACTIONS (2)
  - FEELING OF RELAXATION [None]
  - INSOMNIA [None]
